FAERS Safety Report 19098189 (Version 1)
Quarter: 2021Q2

REPORT INFORMATION
  Report Type: Other
  Country: MX (occurrence: MX)
  Receive Date: 20210406
  Receipt Date: 20210406
  Transmission Date: 20210717
  Serious: Yes (Hospitalization, Disabling)
  Sender: FDA-Public Use
  Company Number: MX-ROCHE-2801547

PATIENT
  Sex: Female

DRUGS (2)
  1. CELEBREX [Concomitant]
     Active Substance: CELECOXIB
     Dosage: FREQUENCY WAS NOT REPORTED
  2. ROACTEMRA [Suspect]
     Active Substance: TOCILIZUMAB
     Indication: RHEUMATOID ARTHRITIS
     Dosage: TOCILIZUMAB VIAL OF 200MG/10ML AND 80 MG
     Route: 042
     Dates: start: 20141201

REACTIONS (5)
  - Arthralgia [Unknown]
  - Arthropathy [Unknown]
  - Pain in extremity [Unknown]
  - Drug ineffective [Unknown]
  - Arthritis infective [Unknown]
